FAERS Safety Report 12546344 (Version 2)
Quarter: 2016Q3

REPORT INFORMATION
  Report Type: Other
  Country: DE (occurrence: DE)
  Receive Date: 20160711
  Receipt Date: 20160722
  Transmission Date: 20161109
  Serious: Yes (Hospitalization)
  Sender: FDA-Public Use
  Company Number: DE-TAKEDA-2016TUS011574

PATIENT
  Age: 23 Year
  Sex: Female

DRUGS (1)
  1. ENTYVIO [Suspect]
     Active Substance: VEDOLIZUMAB
     Indication: COLITIS ULCERATIVE
     Dosage: 300 MG, UNK
     Route: 065
     Dates: start: 201605

REACTIONS (2)
  - Pneumonia [Recovering/Resolving]
  - Pleurisy [Recovering/Resolving]

NARRATIVE: CASE EVENT DATE: 201606
